FAERS Safety Report 12863978 (Version 2)
Quarter: 2016Q4

REPORT INFORMATION
  Report Type: Spontaneous
  Country: US (occurrence: US)
  Receive Date: 20161019
  Receipt Date: 20161106
  Transmission Date: 20170207
  Serious: No
  Sender: FDA-Public Use
  Company Number: US-TAIHO ONCOLOGY INC-EU-2016-02709

PATIENT
  Sex: Male
  Weight: 73.9 kg

DRUGS (6)
  1. ALEVE [Concomitant]
     Active Substance: NAPROXEN SODIUM
     Dosage: AS NEEDED
     Route: 048
  2. LOMOTIL [Concomitant]
     Active Substance: ATROPINE SULFATE\DIPHENOXYLATE HYDROCHLORIDE
     Indication: DIARRHOEA
     Dosage: 0.025 MG-2.5 MG - 2 TABS AS NEEDED
     Route: 048
     Dates: start: 20161012
  3. ONDANSETRON [Concomitant]
     Active Substance: ONDANSETRON
     Indication: NAUSEA
     Dosage: AS NEEDED
     Route: 048
     Dates: start: 20160823
  4. LONSURF [Suspect]
     Active Substance: TIPIRACIL HYDROCHLORIDE\TRIFLURIDINE
     Route: 048
     Dates: start: 20160616
  5. POTASSIUM CHLORIDE. [Concomitant]
     Active Substance: POTASSIUM CHLORIDE
     Dosage: ON FIRST DAY TAKE 8 TABLETS.
     Route: 048
     Dates: start: 20160815
  6. DOXAZOSIN [Concomitant]
     Active Substance: DOXAZOSIN\DOXAZOSIN MESYLATE
     Route: 048

REACTIONS (12)
  - Diarrhoea [Unknown]
  - Neutropenia [Unknown]
  - Hypertension [Unknown]
  - Fatigue [Unknown]
  - Renal cyst [Unknown]
  - Rash [Unknown]
  - Dyspnoea [Unknown]
  - Dysgeusia [Unknown]
  - Platelet count decreased [Unknown]
  - Gastrooesophageal reflux disease [Unknown]
  - Non-cardiac chest pain [Unknown]
  - Decreased appetite [Unknown]

NARRATIVE: CASE EVENT DATE: 2016
